FAERS Safety Report 14034455 (Version 1)
Quarter: 2017Q4

REPORT INFORMATION
  Report Type: Not Available
  Country: US (occurrence: US)
  Receive Date: 20171003
  Receipt Date: 20171003
  Transmission Date: 20180321
  Serious: No
  Sender: FDA-Public Use
  Company Number: US-ANIPHARMA-2017-US-004660

PATIENT
  Age: 62 Year
  Sex: Male

DRUGS (2)
  1. REGLAN [Suspect]
     Active Substance: METOCLOPRAMIDE HYDROCHLORIDE
  2. ERYTHROMYCIN STEARATE (NON-SPECIFIC) [Suspect]
     Active Substance: ERYTHROMYCIN STEARATE

REACTIONS (2)
  - Dyspnoea [Unknown]
  - Swelling face [Unknown]
